FAERS Safety Report 7668663-5 (Version None)
Quarter: 2011Q3

REPORT INFORMATION
  Report Type: 
  Country: None (occurrence: None)
  Receive Date: 20110808
  Receipt Date: 20110804
  Transmission Date: 20111222
  Serious: Yes (Hospitalization, Other)
  Sender: FDA-Public Use
  Company Number: AU-ABBOTT-11P-008-0844193-00

PATIENT
  Sex: Male

DRUGS (3)
  1. CEPHALEXIN [Suspect]
     Indication: FOLLICULITIS
     Route: 048
     Dates: start: 20110512
  2. PERINDOPRIL NOS (PERINDOPRIL ERB OR ARG) [Suspect]
     Indication: HYPERTENSION
     Route: 048
  3. FLOXACILLIN SODIUM [Suspect]
     Indication: PRODUCT USED FOR UNKNOWN INDICATION

REACTIONS (4)
  - RASH [None]
  - HEPATITIS CHOLESTATIC [None]
  - JAUNDICE [None]
  - FOLLICULITIS [None]
